FAERS Safety Report 18319900 (Version 2)
Quarter: 2020Q4

REPORT INFORMATION
  Report Type: Spontaneous
  Country: NL (occurrence: NL)
  Receive Date: 20200928
  Receipt Date: 20201020
  Transmission Date: 20210113
  Serious: Yes (Death, Hospitalization)
  Sender: FDA-Public Use
  Company Number: NL-MACLEODS PHARMACEUTICALS US LTD-MAC2020028227

PATIENT

DRUGS (17)
  1. QUETIAPINE. [Interacting]
     Active Substance: QUETIAPINE
     Indication: APHASIA
  2. LACOSAMIDE. [Suspect]
     Active Substance: LACOSAMIDE
     Indication: PARTIAL SEIZURES
     Dosage: UNK
     Route: 065
  3. CARBAMAZEPINE. [Interacting]
     Active Substance: CARBAMAZEPINE
     Indication: PARTIAL SEIZURES
     Dosage: 400 MILLIGRAM, BID
     Route: 065
  4. OXAZEPAM. [Concomitant]
     Active Substance: OXAZEPAM
     Dosage: 10 MILLIGRAM, TID,
     Route: 065
  5. QUETIAPINE. [Interacting]
     Active Substance: QUETIAPINE
     Indication: SUSPICIOUSNESS
     Dosage: 100 MILLIGRAM, QD, 375 MG PER DAY WHICH WAS DIVIDED INTO THE FOLLOWING DOSES 100 MG AT 12:00 P.M., 1
     Route: 065
  6. QUETIAPINE. [Interacting]
     Active Substance: QUETIAPINE
     Indication: BEHAVIOUR DISORDER
     Dosage: 150 MILLIGRAM, QD, 375 MG PER DAY WHICH WAS DIVIDED INTO THE FOLLOWING DOSES 100 MG AT 12:00 P.M., 1
     Route: 065
  7. SERTRALINE [Concomitant]
     Active Substance: SERTRALINE HYDROCHLORIDE
     Dosage: UNK, DOSE INCREASED
     Route: 065
  8. QUETIAPINE. [Interacting]
     Active Substance: QUETIAPINE
     Indication: ANXIETY
     Dosage: UNK, INCREASED OVER A PERIOD OF 6 WEEKS TO 375 MG PER DAY
     Route: 065
  9. QUETIAPINE. [Suspect]
     Active Substance: QUETIAPINE
     Indication: AGITATION
     Dosage: 50 MILLIGRAM, QD, AT NIGHT
     Route: 065
  10. QUETIAPINE. [Interacting]
     Active Substance: QUETIAPINE
     Indication: PSYCHOMOTOR HYPERACTIVITY
  11. QUETIAPINE. [Interacting]
     Active Substance: QUETIAPINE
     Indication: AFFECTIVE DISORDER
  12. OXAZEPAM. [Concomitant]
     Active Substance: OXAZEPAM
     Indication: ANXIETY
     Dosage: UNK
     Route: 065
  13. OXAZEPAM. [Concomitant]
     Active Substance: OXAZEPAM
     Dosage: 10 MILLIGRAM, QID, 4 TIMES A DAY
     Route: 065
  14. SERTRALINE [Concomitant]
     Active Substance: SERTRALINE HYDROCHLORIDE
     Indication: BURNOUT SYNDROME
     Dosage: UNK
     Route: 065
  15. QUETIAPINE. [Interacting]
     Active Substance: QUETIAPINE
     Indication: AGGRESSION
     Dosage: 125 MILLIGRAM, QD, 375 MG PER DAY WHICH WAS DIVIDED INTO THE FOLLOWING DOSES 100 MG AT 12:00 P.M., 1
     Route: 065
  16. LEVETIRACETAM. [Suspect]
     Active Substance: LEVETIRACETAM
     Indication: PARTIAL SEIZURES
     Dosage: UNK
     Route: 065
  17. OXAZEPAM. [Concomitant]
     Active Substance: OXAZEPAM
     Indication: RESTLESSNESS
     Dosage: 200 MILLIGRAM, QD
     Route: 065

REACTIONS (4)
  - Astrocytoma [Fatal]
  - Drug level decreased [Unknown]
  - Drug interaction [Unknown]
  - Drug ineffective [Unknown]
